FAERS Safety Report 6032507-8 (Version None)
Quarter: 2009Q1

REPORT INFORMATION
  Report Type: 
  Country: None (occurrence: None)
  Receive Date: 20090109
  Receipt Date: 20081105
  Transmission Date: 20090719
  Serious: No
  Sender: FDA-Public Use
  Company Number: A0752194A

PATIENT
  Age: 45 Year
  Sex: Female

DRUGS (4)
  1. TYKERB [Suspect]
     Indication: BREAST CANCER
     Dosage: 1250MG PER DAY
     Route: 048
     Dates: start: 20080901
  2. M.V.I. [Concomitant]
  3. ZOMETA [Concomitant]
     Route: 042
  4. ADVIL LIQUI-GELS [Concomitant]

REACTIONS (6)
  - ABDOMINAL DISCOMFORT [None]
  - ACNE [None]
  - DIARRHOEA [None]
  - PARONYCHIA [None]
  - RASH [None]
  - SKIN DISORDER [None]
